FAERS Safety Report 19663382 (Version 1)
Quarter: 2021Q3

REPORT INFORMATION
  Report Type: Spontaneous
  Country: US (occurrence: US)
  Receive Date: 20210805
  Receipt Date: 20210805
  Transmission Date: 20211014
  Serious: No
  Sender: FDA-Public Use
  Company Number: US-SK LIFE SCIENCE, INC-SKPVG-2020-000031

PATIENT

DRUGS (2)
  1. XCOPRI [Suspect]
     Active Substance: CENOBAMATE
     Dosage: 200 MILLIGRAM, QD AT NIGHT
     Route: 048
     Dates: start: 2020
  2. XCOPRI [Suspect]
     Active Substance: CENOBAMATE
     Indication: SEIZURE
     Dosage: UNK
     Route: 065
     Dates: start: 2020

REACTIONS (3)
  - Seizure [Unknown]
  - Headache [Unknown]
  - Fall [Unknown]

NARRATIVE: CASE EVENT DATE: 20200619
